FAERS Safety Report 10040797 (Version 1)
Quarter: 2014Q1

REPORT INFORMATION
  Report Type: Spontaneous
  Country: US (occurrence: US)
  Receive Date: 20140327
  Receipt Date: 20140327
  Transmission Date: 20141002
  Serious: Yes (Other)
  Sender: FDA-Public Use
  Company Number: CHPA2014US004414

PATIENT
  Sex: Female

DRUGS (1)
  1. PREVACID 24HR 15MG [Suspect]

REACTIONS (1)
  - Fracture [Unknown]
